FAERS Safety Report 5831863-0 (Version None)
Quarter: 2008Q3

REPORT INFORMATION
  Report Type: 
  Country: None (occurrence: None)
  Receive Date: 20080731
  Receipt Date: 20080721
  Transmission Date: 20090109
  Serious: Yes (Hospitalization, Other)
  Sender: FDA-Public Use
  Company Number: 107#08#2008-03792

PATIENT
  Sex: Male

DRUGS (1)
  1. MIRTAZAPINE [Suspect]
     Indication: DRUG EXPOSURE DURING PREGNANCY
     Route: 064

REACTIONS (4)
  - CAESAREAN SECTION [None]
  - HYPOTHERMIA NEONATAL [None]
  - MATERNAL DRUGS AFFECTING FOETUS [None]
  - PREMATURE BABY [None]
